FAERS Safety Report 23883776 (Version 2)
Quarter: 2024Q3

REPORT INFORMATION
  Report Type: Spontaneous
  Country: US (occurrence: US)
  Receive Date: 20240522
  Receipt Date: 20240826
  Transmission Date: 20241017
  Serious: No
  Sender: AMGEN
  Company Number: US-AMGEN-USASP2024097843

PATIENT
  Age: 48 Year
  Sex: Female

DRUGS (12)
  1. REPATHA [Suspect]
     Active Substance: EVOLOCUMAB
     Indication: Blood cholesterol increased
     Dosage: UNK, LOWER DOSE OF REPATHA
     Route: 058
  2. REPATHA [Suspect]
     Active Substance: EVOLOCUMAB
     Indication: Blood triglycerides increased
     Dosage: 420 MILLIGRAM, QMO
     Route: 058
  3. REPATHA [Suspect]
     Active Substance: EVOLOCUMAB
     Dosage: UNK
     Route: 058
  4. ICOSAPENT [Concomitant]
     Active Substance: ICOSAPENT
     Indication: Blood triglycerides increased
     Dosage: UNK
  5. OZEMPIC [Concomitant]
     Active Substance: SEMAGLUTIDE
     Indication: Glucose tolerance impaired
     Dosage: UNK
  6. METOPROLOL [Concomitant]
     Active Substance: METOPROLOL
     Indication: Hypertension
     Dosage: UNK
  7. SINGULAIR [Concomitant]
     Active Substance: MONTELUKAST SODIUM
     Indication: Hypersensitivity
     Dosage: UNK
  8. ALLEGRA [Concomitant]
     Active Substance: FEXOFENADINE HYDROCHLORIDE
     Indication: Hypersensitivity
     Dosage: UNK
  9. BUPROPION [Concomitant]
     Active Substance: BUPROPION
     Indication: Depression
     Dosage: UNK
  10. BUPROPION [Concomitant]
     Active Substance: BUPROPION
     Indication: Anxiety
  11. ZOLOFT [Concomitant]
     Active Substance: SERTRALINE HYDROCHLORIDE
     Indication: Depression
     Dosage: UNK
  12. ZOLOFT [Concomitant]
     Active Substance: SERTRALINE HYDROCHLORIDE
     Indication: Anxiety

REACTIONS (4)
  - Therapeutic product effect incomplete [Recovered/Resolved]
  - Product preparation error [Unknown]
  - Drug dose omission by device [Unknown]
  - Wrong technique in product usage process [Unknown]

NARRATIVE: CASE EVENT DATE: 20240515
